FAERS Safety Report 25847124 (Version 1)
Quarter: 2025Q3

REPORT INFORMATION
  Report Type: Spontaneous
  Country: EU (occurrence: EU)
  Receive Date: 20250925
  Receipt Date: 20250925
  Transmission Date: 20251020
  Serious: Yes (Other)
  Sender: OTSUKA
  Company Number: EU-MMM-Otsuka-G1C23BM9

PATIENT
  Sex: Female

DRUGS (15)
  1. ABILIFY [Suspect]
     Active Substance: ARIPIPRAZOLE
     Indication: Product used for unknown indication
     Dosage: 10 MG, DAILY
     Route: 065
     Dates: start: 20220419, end: 20220803
  2. ABILIFY [Suspect]
     Active Substance: ARIPIPRAZOLE
     Dosage: 15 MG, DAILY
     Route: 065
     Dates: start: 20230109, end: 20240115
  3. ABILIFY [Suspect]
     Active Substance: ARIPIPRAZOLE
     Dosage: 15 MG, DAILY
     Route: 065
     Dates: start: 20240115
  4. ANAFRANIL [Suspect]
     Active Substance: CLOMIPRAMINE HYDROCHLORIDE
     Indication: Product used for unknown indication
     Dosage: 100 MG, DAILY
     Route: 065
     Dates: start: 20220419, end: 20220803
  5. ANAFRANIL [Suspect]
     Active Substance: CLOMIPRAMINE HYDROCHLORIDE
     Dosage: 150 MG, DAILY
     Route: 065
     Dates: start: 20220803, end: 20230109
  6. ANAFRANIL [Suspect]
     Active Substance: CLOMIPRAMINE HYDROCHLORIDE
     Dosage: 300 MG, DAILY
     Route: 065
     Dates: start: 20230109, end: 20240115
  7. ANAFRANIL [Suspect]
     Active Substance: CLOMIPRAMINE HYDROCHLORIDE
     Dosage: 225 MG
     Route: 065
     Dates: start: 20240115, end: 20240826
  8. QUETIAPINE [Suspect]
     Active Substance: QUETIAPINE
     Indication: Product used for unknown indication
     Dosage: 100 MG, DAILY
     Route: 065
     Dates: start: 20220419, end: 20220803
  9. QUETIAPINE [Suspect]
     Active Substance: QUETIAPINE
     Dosage: 100 MG, DAILY
     Route: 065
     Dates: start: 20220803, end: 20230109
  10. ZYPREXA [Suspect]
     Active Substance: OLANZAPINE
     Indication: Product used for unknown indication
     Dosage: 15 MG, DAILY
     Route: 065
     Dates: start: 20220803, end: 20230109
  11. TRAZODONE HYDROCHLORIDE [Suspect]
     Active Substance: TRAZODONE HYDROCHLORIDE
     Indication: Product used for unknown indication
     Dosage: 100 MG, DAILY
     Route: 065
     Dates: start: 20230109, end: 20240115
  12. TRAZODONE HYDROCHLORIDE [Suspect]
     Active Substance: TRAZODONE HYDROCHLORIDE
     Dosage: 200 MG, DAILY
     Route: 065
     Dates: start: 20240115
  13. BISOPROLOL FUMARATE [Suspect]
     Active Substance: BISOPROLOL FUMARATE
     Indication: Product used for unknown indication
     Dosage: 2.5 MG, DAILY
     Route: 065
     Dates: start: 20230109, end: 20240115
  14. PREGABALIN [Suspect]
     Active Substance: PREGABALIN
     Indication: Product used for unknown indication
     Dosage: 50 MG, DAILY
     Route: 065
     Dates: start: 20240115
  15. FERROUS SULFATE [Concomitant]
     Active Substance: FERROUS SULFATE
     Indication: Product used for unknown indication
     Dosage: 80 MG, DAILY
     Route: 065
     Dates: start: 20220419, end: 20220803

REACTIONS (2)
  - Obesity [Not Recovered/Not Resolved]
  - Weight increased [Not Recovered/Not Resolved]
